FAERS Safety Report 9395135 (Version 1)
Quarter: 2013Q3

REPORT INFORMATION
  Report Type: Spontaneous
  Country: FR (occurrence: None)
  Receive Date: 20130705
  Receipt Date: 20130705
  Transmission Date: 20140515
  Serious: Yes (Other)
  Sender: FDA-Public Use
  Company Number: NSR_01168_2013

PATIENT
  Age: 67 Year
  Sex: Female

DRUGS (3)
  1. LAMOTRIGINE (LAMOTRIGINE) [Suspect]
     Indication: PARTIAL SEIZURES
     Dosage: UNTIL NOT CONTINUING.
     Route: 048
  2. SODIUM PICOSULFATE [Suspect]
     Indication: COLONOSCOPY
     Dosage: UNTIL NOT CONTINUING.
  3. MACROGOL [Suspect]
     Indication: COLONOSCOPY
     Dosage: 3 HR. BEFORE FIRST SACHET;ORAL, THEN 6 HR. BEFORE THE SECOND SACHET.
     Route: 048

REACTIONS (2)
  - Drug interaction [None]
  - Partial seizures [None]
